FAERS Safety Report 17037903 (Version 1)
Quarter: 2019Q4

REPORT INFORMATION
  Report Type: Spontaneous
  Country: US (occurrence: US)
  Receive Date: 20191115
  Receipt Date: 20191115
  Transmission Date: 20200122
  Serious: No
  Sender: FDA-Public Use
  Company Number: US-TEVA-2019-US-1136222

PATIENT
  Sex: Female

DRUGS (2)
  1. ARMODAFINIL. [Suspect]
     Active Substance: ARMODAFINIL
     Indication: PRODUCT USED FOR UNKNOWN INDICATION
     Route: 065
  2. NUVIGIL [Suspect]
     Active Substance: ARMODAFINIL
     Indication: PRODUCT USED FOR UNKNOWN INDICATION
     Route: 065

REACTIONS (8)
  - Wrong technique in product usage process [Unknown]
  - Paranoia [Unknown]
  - Product coating issue [Unknown]
  - Malaise [Unknown]
  - Product appearance confusion [Unknown]
  - Incorrect dose administered [Unknown]
  - Product dose omission [Unknown]
  - Abdominal discomfort [Unknown]
